FAERS Safety Report 24132772 (Version 1)
Quarter: 2024Q3

REPORT INFORMATION
  Report Type: Spontaneous
  Country: US (occurrence: US)
  Receive Date: 20240724
  Receipt Date: 20240724
  Transmission Date: 20241016
  Serious: No
  Sender: ROCHE
  Company Number: US-ROCHE-10000033290

PATIENT
  Age: 74 Year
  Sex: Female

DRUGS (1)
  1. ACTEMRA ACTPEN [Suspect]
     Active Substance: TOCILIZUMAB
     Indication: Giant cell arteritis
     Dosage: EVERY WEEK
     Route: 058

REACTIONS (4)
  - Fatigue [Unknown]
  - Vision blurred [Unknown]
  - Hypoaesthesia [Unknown]
  - Platelet count decreased [Unknown]
